FAERS Safety Report 8335034-8 (Version None)
Quarter: 2012Q2

REPORT INFORMATION
  Report Type: 
  Country: None (occurrence: None)
  Receive Date: 20120503
  Receipt Date: 20120420
  Transmission Date: 20120825
  Serious: Yes (Other)
  Sender: FDA-Public Use
  Company Number: BE-CELGENEUS-013-C5013-12042259

PATIENT
  Sex: Male
  Weight: 67 kg

DRUGS (3)
  1. PREDNISONE TAB [Suspect]
     Indication: PROSTATE CANCER
     Route: 065
     Dates: start: 20111004, end: 20111115
  2. LENALIDOMIDE [Suspect]
     Indication: PROSTATE CANCER
     Route: 048
     Dates: start: 20111004, end: 20111115
  3. DOCETAXEL [Suspect]
     Indication: PROSTATE CANCER
     Route: 065
     Dates: start: 20111004, end: 20111115

REACTIONS (1)
  - RECTAL CANCER [None]
